FAERS Safety Report 8830393 (Version 1)
Quarter: 2012Q4

REPORT INFORMATION
  Report Type: 
  Country: US (occurrence: US)
  Receive Date: 20121009
  Receipt Date: 20121009
  Transmission Date: 20130627
  Serious: No
  Sender: FDA-Public Use
  Company Number: US-ASTRAZENECA-2012SE61207

PATIENT
  Age: 71 Year
  Sex: Male
  Weight: 79.4 kg

DRUGS (8)
  1. BRILINTA [Suspect]
     Indication: CATHETERISATION CARDIAC
     Route: 048
     Dates: start: 20120725
  2. TENORMIN [Concomitant]
     Indication: BLOOD PRESSURE ABNORMAL
     Route: 048
  3. LEVOXIL [Concomitant]
     Indication: THYROID DISORDER
     Route: 048
  4. HCTZ [Concomitant]
     Route: 048
  5. ATORVASTATIN [Concomitant]
     Indication: BLOOD CHOLESTEROL ABNORMAL
     Route: 048
  6. GLYBURIDE [Concomitant]
     Route: 048
  7. NITROGLYCERIN [Concomitant]
     Route: 048
  8. TYLENOL [Concomitant]
     Route: 048

REACTIONS (2)
  - Insomnia [Unknown]
  - Dyspnoea [Unknown]
